FAERS Safety Report 22330180 (Version 1)
Quarter: 2023Q2

REPORT INFORMATION
  Report Type: Report from Study
  Country: US (occurrence: None)
  Receive Date: 20230517
  Receipt Date: 20230517
  Transmission Date: 20230722
  Serious: Yes (Death, Life-Threatening)
  Sender: FDA-Public Use
  Company Number: US-ROCHE-3349182

PATIENT

DRUGS (8)
  1. RITUXIMAB [Suspect]
     Active Substance: RITUXIMAB
     Indication: Burkitt^s lymphoma
     Dosage: ACTUAL DOSE 750 MG
     Route: 065
     Dates: start: 20150910
  2. CYCLOPHOSPHAMIDE [Suspect]
     Active Substance: CYCLOPHOSPHAMIDE
     Indication: Burkitt^s lymphoma
     Dosage: ACTUAL DOSE 1500 MG
     Route: 065
     Dates: start: 20150914
  3. DOXORUBICIN [Suspect]
     Active Substance: DOXORUBICIN
     Indication: Burkitt^s lymphoma
     Dosage: ACTUAL DOSE 60 MG, MOST RECENT DOSE ADMINISTERED ON 13/SEP/2015
     Route: 065
     Dates: start: 20150911
  4. METHOTREXATE [Suspect]
     Active Substance: METHOTREXATE
     Indication: Burkitt^s lymphoma
     Dosage: ACTUAL 12 MG,  14/SEP/2015, 18/SEP/2015 AND 21/SEP/2021
     Route: 065
     Dates: start: 20150911
  5. FILGRASTIM [Suspect]
     Active Substance: FILGRASTIM
     Indication: Burkitt^s lymphoma
     Dosage: ACTUAL DOSE 4800 MCG, MOST RECENT DOSE WAS ADMINISTERED ON 30/SEP/2015
     Route: 065
     Dates: start: 20150915
  6. ETOPOSIDE [Suspect]
     Active Substance: ETOPOSIDE
     Indication: Burkitt^s lymphoma
     Dosage: MOST RECENT DOSE WAS ADMINISTERED ON 13/SEP/2015
     Route: 065
     Dates: start: 20150911
  7. PREDNISONE [Suspect]
     Active Substance: PREDNISONE
     Indication: Burkitt^s lymphoma
     Dosage: MOST RECENT DOSE WAS ADMINISTERED ON 15/SEP/2015, ACTUAL DOSE 1200 MG
     Route: 065
     Dates: start: 20150910
  8. VINCRISTINE [Suspect]
     Active Substance: VINCRISTINE
     Indication: Burkitt^s lymphoma
     Dosage: MOST RECENT DOSE ADMINISTERED WAS ON 13/SEP/2015. ACTUAL DOSE 2.4 MG
     Route: 065
     Dates: start: 20150911

REACTIONS (2)
  - Febrile neutropenia [Not Recovered/Not Resolved]
  - Multiple organ dysfunction syndrome [Fatal]

NARRATIVE: CASE EVENT DATE: 20150925
